FAERS Safety Report 17393592 (Version 2)
Quarter: 2020Q1

REPORT INFORMATION
  Report Type: Spontaneous
  Country: FR (occurrence: FR)
  Receive Date: 20200208
  Receipt Date: 20200219
  Transmission Date: 20200409
  Serious: Yes (Hospitalization, Other)
  Sender: FDA-Public Use
  Company Number: NVSC2020FR026306

PATIENT
  Age: 72 Year
  Sex: Male

DRUGS (27)
  1. FOLINORAL [Suspect]
     Active Substance: LEUCOVORIN CALCIUM
     Indication: PROPHYLAXIS
     Dosage: 25 MG, QW (1 TABLET OF 25 MG ON SUNDAY)
     Route: 048
     Dates: start: 20190930
  2. LITAK [Suspect]
     Active Substance: CLADRIBINE
     Indication: HAIRY CELL LEUKAEMIA RECURRENT
     Dosage: 11.60 MG PER DAY FROM D1 TO D5
     Route: 058
     Dates: start: 20190930, end: 20191004
  3. LASILIX [Concomitant]
     Active Substance: FUROSEMIDE
     Dosage: 20 MG, QD (AM)
     Route: 065
     Dates: start: 20191031
  4. ERYTHROPOIETIN [Suspect]
     Active Substance: ERYTHROPOIETIN
     Indication: PRODUCT USED FOR UNKNOWN INDICATION
     Dosage: UNK
     Route: 065
  5. VELMETIA [Suspect]
     Active Substance: METFORMIN\SITAGLIPTIN
     Indication: PRODUCT USED FOR UNKNOWN INDICATION
     Dosage: 1000 MG, BID (50MG/1000MG: 0-1-1)
     Route: 048
  6. PENTACARINAT [Concomitant]
     Active Substance: PENTAMIDINE ISETHIONATE
     Indication: PRODUCT USED FOR UNKNOWN INDICATION
     Dosage: UNK
     Route: 065
  7. ZARZIO [Suspect]
     Active Substance: FILGRASTIM
     Indication: NEUTROPENIA
     Dosage: 30 MIU, QD
     Route: 058
     Dates: start: 20191015
  8. DIAMICRON [Suspect]
     Active Substance: GLICLAZIDE
     Indication: PRODUCT USED FOR UNKNOWN INDICATION
     Dosage: 60 MG, QD {1-0-0, MODIFIED-RELEASE TABLET}
     Route: 048
  9. BEPANTHENE [Concomitant]
     Active Substance: DEXPANTHENOL
     Indication: SKIN EXFOLIATION
     Dosage: UNK
     Route: 065
     Dates: start: 20191031
  10. VALACICLOVIR [Suspect]
     Active Substance: VALACYCLOVIR HYDROCHLORIDE
     Indication: INFECTION PROPHYLAXIS
     Dosage: 500 MG, Q2H
     Route: 048
     Dates: start: 20191009
  11. POLARAMINE [Concomitant]
     Active Substance: DEXCHLORPHENIRAMINE MALEATE
     Indication: PRODUCT USED FOR UNKNOWN INDICATION
     Dosage: 1 DF (1 AMPULE, NOCTE)
     Route: 065
     Dates: start: 20191029
  12. LASILIX [Concomitant]
     Active Substance: FUROSEMIDE
     Indication: PRODUCT USED FOR UNKNOWN INDICATION
     Dosage: 40 MG, QD (PM)
     Route: 065
     Dates: start: 20191028
  13. ESOMEPRAZOLE. [Suspect]
     Active Substance: ESOMEPRAZOLE MAGNESIUM
     Indication: PRODUCT USED FOR UNKNOWN INDICATION
     Dosage: 20 MG, QD {0-0-1}
     Route: 048
  14. FLUVASTATIN [Suspect]
     Active Substance: FLUVASTATIN SODIUM
     Indication: PRODUCT USED FOR UNKNOWN INDICATION
     Dosage: 20 MG, QD {0-0-1}
     Route: 048
  15. CEFTRIAXONE. [Suspect]
     Active Substance: CEFTRIAXONE
     Indication: ANTIBIOTIC THERAPY
     Dosage: 1 G, QD
     Route: 042
     Dates: start: 20191008, end: 20191009
  16. CIPROFLOXACIN. [Suspect]
     Active Substance: CIPROFLOXACIN
     Indication: FEBRILE BONE MARROW APLASIA
     Dosage: 500 MG, Q12H
     Route: 048
     Dates: start: 20191011, end: 20191018
  17. TRULICITY [Suspect]
     Active Substance: DULAGLUTIDE
     Indication: PRODUCT USED FOR UNKNOWN INDICATION
     Dosage: 1 DF, QW {1 INJECTION OF 1.5 MG ON SUNDAY}
     Route: 058
  18. POLARAMINE [Concomitant]
     Active Substance: DEXCHLORPHENIRAMINE MALEATE
     Dosage: 1 DF, QD
     Route: 065
     Dates: start: 20191031
  19. BACTRIM [Suspect]
     Active Substance: SULFAMETHOXAZOLE\TRIMETHOPRIM
     Indication: INFECTION PROPHYLAXIS
     Dosage: 1 DF, QD {1 TABLET OF 800/160MG A DAY ON SUNDAY, WEDNESDAY AND FRIDAY}
     Route: 048
     Dates: start: 20190930
  20. KARDEGIC [Suspect]
     Active Substance: ASPIRIN DL-LYSINE
     Indication: PRODUCT USED FOR UNKNOWN INDICATION
     Dosage: 75 MG, QD {0-1-0}
     Route: 048
  21. LASILIX [Concomitant]
     Active Substance: FUROSEMIDE
     Dosage: 40 MG, QD (IN THE MORNINGS)
     Route: 065
     Dates: start: 20191029
  22. ATARAX [Concomitant]
     Active Substance: HYDROXYZINE HYDROCHLORIDE
     Indication: PRODUCT USED FOR UNKNOWN INDICATION
     Dosage: 1 DF, QD (PM)
     Route: 065
     Dates: start: 20191029
  23. RAMIPRIL. [Suspect]
     Active Substance: RAMIPRIL
     Indication: PRODUCT USED FOR UNKNOWN INDICATION
     Dosage: 2.5 MG, QD {0-1-0}
     Route: 048
  24. BINOCRIT [Suspect]
     Active Substance: ERYTHROPOIETIN
     Indication: ANAEMIA
     Dosage: 30000 IU, QW (EVERY MONDAY)
     Route: 058
     Dates: start: 20191014
  25. FORLAX [Suspect]
     Active Substance: POLYETHYLENE GLYCOL 4000
     Indication: PRODUCT USED FOR UNKNOWN INDICATION
     Dosage: 10 G, PRN (AS NECESSARY)
     Route: 065
  26. BACTRIM [Suspect]
     Active Substance: SULFAMETHOXAZOLE\TRIMETHOPRIM
     Dosage: 1 TABLET OF 800/160MG A DAY ON SUNDAY, WEDNESDAY AND FRIDAY
     Route: 048
     Dates: start: 20190930, end: 20191026
  27. TAZOCILLINE [Suspect]
     Active Substance: PIPERACILLIN SODIUM\TAZOBACTAM SODIUM
     Indication: FEBRILE BONE MARROW APLASIA
     Dosage: 1 DF, QD (4G/500MG: 1 INJECTION)
     Route: 042
     Dates: start: 20191008, end: 20191008

REACTIONS (9)
  - Dysuria [Unknown]
  - Febrile bone marrow aplasia [Recovered/Resolved]
  - Rash [Not Recovered/Not Resolved]
  - Neutropenia [Unknown]
  - Anaemia [Unknown]
  - Febrile bone marrow aplasia [Not Recovered/Not Resolved]
  - Face oedema [Unknown]
  - Generalised oedema [Not Recovered/Not Resolved]
  - Pruritus [Recovered/Resolved]

NARRATIVE: CASE EVENT DATE: 201910
